FAERS Safety Report 19605055 (Version 1)
Quarter: 2021Q3

REPORT INFORMATION
  Report Type: Spontaneous
  Country: CN (occurrence: CN)
  Receive Date: 20210723
  Receipt Date: 20210723
  Transmission Date: 20211014
  Serious: Yes (Hospitalization)
  Sender: FDA-Public Use
  Company Number: CN-PFIZER INC-2021872800

PATIENT
  Age: 5 Year
  Sex: Male
  Weight: 18 kg

DRUGS (2)
  1. CYTARABINE. [Suspect]
     Active Substance: CYTARABINE
     Indication: CHEMOTHERAPY
     Dosage: 0.074 G, 1X/DAY
     Route: 041
     Dates: start: 20210613, end: 20210617
  2. CYTARABINE. [Suspect]
     Active Substance: CYTARABINE
     Dosage: 0.074 G, 1X/DAY
     Route: 041
     Dates: start: 20210620, end: 20210624

REACTIONS (2)
  - Myelosuppression [Recovering/Resolving]
  - Petechiae [Recovering/Resolving]

NARRATIVE: CASE EVENT DATE: 20210629
